FAERS Safety Report 8904414 (Version 9)
Quarter: 2014Q3

REPORT INFORMATION
  Report Type: Spontaneous
  Country: US (occurrence: US)
  Receive Date: 20121112
  Receipt Date: 20140827
  Transmission Date: 20150326
  Serious: Yes (Disabling, Other)
  Sender: FDA-Public Use
  Company Number: US-009507513-1211USA003018

PATIENT
  Sex: Male
  Weight: 104.31 kg

DRUGS (4)
  1. PROSCAR [Suspect]
     Active Substance: FINASTERIDE
     Indication: ALOPECIA
     Dosage: 5 MG, QD
     Route: 048
     Dates: start: 20100428, end: 20120126
  2. FINASTERIDE. [Suspect]
     Active Substance: FINASTERIDE
     Dosage: 5 MG, QD
     Route: 048
     Dates: start: 20130507, end: 20140725
  3. FINASTERIDE. [Suspect]
     Active Substance: FINASTERIDE
     Indication: ALOPECIA
     Dosage: 1 MG, UNK
     Route: 048
     Dates: start: 2001
  4. PROPECIA [Suspect]
     Active Substance: FINASTERIDE
     Indication: ALOPECIA
     Dosage: 1 MG, QD
     Route: 048
     Dates: start: 200101, end: 20130719

REACTIONS (31)
  - Anxiety [Not Recovered/Not Resolved]
  - Depression [Not Recovered/Not Resolved]
  - Hair transplant [Unknown]
  - Arthralgia [Unknown]
  - Initial insomnia [Unknown]
  - Arthralgia [Unknown]
  - Palpitations [Unknown]
  - Organic erectile dysfunction [Unknown]
  - Upper-airway cough syndrome [Unknown]
  - Rotator cuff syndrome [Unknown]
  - Testicular disorder [Unknown]
  - Intervertebral disc disorder [Unknown]
  - Essential hypertension [Unknown]
  - Oedema [Unknown]
  - Blood testosterone decreased [Unknown]
  - Nephropathy [Unknown]
  - Back pain [Unknown]
  - Cardiovascular disorder [Unknown]
  - Rhinorrhoea [Unknown]
  - Drug administration error [Unknown]
  - Hyperlipidaemia [Unknown]
  - Arthritis [Unknown]
  - Cardiomegaly [Unknown]
  - Loss of libido [Unknown]
  - Pain [Not Recovered/Not Resolved]
  - Basal cell carcinoma [Unknown]
  - Malignant melanoma [Unknown]
  - Sexual dysfunction [Unknown]
  - Growth hormone deficiency [Unknown]
  - Joint injury [Unknown]
  - Meniere^s disease [Unknown]

NARRATIVE: CASE EVENT DATE: 200203
